FAERS Safety Report 12047865 (Version 1)
Quarter: 2016Q1

REPORT INFORMATION
  Report Type: Spontaneous
  Country: US (occurrence: US)
  Receive Date: 20160208
  Receipt Date: 20160208
  Transmission Date: 20160526
  Serious: No
  Sender: FDA-Public Use
  Company Number: US-ELI_LILLY_AND_COMPANY-US201601004253

PATIENT
  Sex: Female

DRUGS (5)
  1. TRULICITY [Suspect]
     Active Substance: DULAGLUTIDE
     Indication: TYPE 2 DIABETES MELLITUS
     Dosage: 0.75 MG, WEEKLY (1/W)
     Route: 065
     Dates: start: 201512
  2. GLUCOPHAGE [Concomitant]
     Active Substance: METFORMIN HYDROCHLORIDE
     Dosage: UNK, UNKNOWN
     Route: 065
  3. TRULICITY [Suspect]
     Active Substance: DULAGLUTIDE
     Dosage: 0.75 MG, WEEKLY (1/W)
     Route: 065
     Dates: start: 20160102
  4. JARDIANCE [Concomitant]
     Active Substance: EMPAGLIFLOZIN
     Dosage: UNK, UNKNOWN
     Route: 065
  5. ATANOL [Concomitant]
     Dosage: UNK, UNKNOWN
     Route: 065

REACTIONS (4)
  - Abdominal discomfort [Unknown]
  - Headache [Unknown]
  - Dyspepsia [Unknown]
  - Vomiting [Unknown]

NARRATIVE: CASE EVENT DATE: 201512
